FAERS Safety Report 5775229-0 (Version None)
Quarter: 2008Q2

REPORT INFORMATION
  Report Type: 
  Country: None (occurrence: None)
  Receive Date: 20080616
  Receipt Date: 20080616
  Transmission Date: 20081010
  Serious: Yes (Death)
  Sender: FDA-Public Use
  Company Number: None

PATIENT
  Sex: Male
  Weight: 89.8122 kg

DRUGS (2)
  1. VINORELBINE [Suspect]
     Indication: SYNOVIAL SARCOMA
     Dosage: 15MG/M2 (INITIALLY 25 D 1,8,15 Q 28 D IV
     Route: 042
     Dates: start: 20080214, end: 20080508
  2. LAPATINIB 1500MG [Suspect]
     Indication: SYNOVIAL SARCOMA
     Dosage: 1500MG DAILY P.O.
     Route: 048
     Dates: start: 20080214, end: 20080514

REACTIONS (12)
  - CIRCULATORY COLLAPSE [None]
  - DEHYDRATION [None]
  - DISEASE PROGRESSION [None]
  - DYSPNOEA [None]
  - HYPERTENSION [None]
  - METASTASES TO LUNG [None]
  - METASTASES TO TRACHEA [None]
  - NAUSEA [None]
  - ORAL INTAKE REDUCED [None]
  - OXYGEN SATURATION DECREASED [None]
  - TACHYCARDIA [None]
  - VOMITING [None]
